FAERS Safety Report 13760410 (Version 1)
Quarter: 2017Q3

REPORT INFORMATION
  Report Type: Spontaneous
  Country: None (occurrence: GB)
  Receive Date: 20170717
  Receipt Date: 20170717
  Transmission Date: 20171127
  Serious: No
  Sender: FDA-Public Use
  Company Number: GB-MERZ NORTH AMERICA, INC.-17MRZ-00220

PATIENT
  Sex: Female

DRUGS (9)
  1. CYANOCOBALAMIN. [Concomitant]
     Active Substance: CYANOCOBALAMIN
  2. XEOMIN [Suspect]
     Active Substance: INCOBOTULINUMTOXINA
     Indication: MUSCLE SPASMS
     Dosage: (300 IU,1 IN 1 TOTAL)
     Route: 030
     Dates: start: 20161115, end: 20161115
  3. FERROUS GLUCONATE [Concomitant]
     Active Substance: FERROUS GLUCONATE
  4. GABAPENTIN. [Concomitant]
     Active Substance: GABAPENTIN
  5. XEOMIN [Suspect]
     Active Substance: INCOBOTULINUMTOXINA
     Dosage: (300 IU,1 IN 1 TOTAL)
     Route: 030
     Dates: start: 20170321, end: 20170321
  6. BACLOFEN. [Concomitant]
     Active Substance: BACLOFEN
  7. ERGOCALCIFEROL. [Concomitant]
     Active Substance: ERGOCALCIFEROL
  8. AMANTADINE. [Concomitant]
     Active Substance: AMANTADINE HYDROCHLORIDE
  9. URSODEOXYCHOLIC ACID [Concomitant]
     Active Substance: URSODIOL

REACTIONS (1)
  - Lower respiratory tract infection [Recovered/Resolved]
